FAERS Safety Report 5618715-6 (Version None)
Quarter: 2008Q1

REPORT INFORMATION
  Report Type: 
  Country: None (occurrence: None)
  Receive Date: 20080207
  Receipt Date: 20080201
  Transmission Date: 20080703
  Serious: Yes (Other)
  Sender: FDA-Public Use
  Company Number: US-ASTRAZENECA-2008UW02318

PATIENT
  Age: 59 Year
  Sex: Female
  Weight: 81.6 kg

DRUGS (9)
  1. ARIMIDEX [Suspect]
     Indication: BREAST CANCER
     Route: 048
     Dates: start: 20070101
  2. ATENOLOL [Concomitant]
  3. CADUET [Concomitant]
  4. HYDROCHLOROTHIAZIDE [Concomitant]
  5. ASPIRIN [Concomitant]
  6. CALCIUM GLUCONATE [Concomitant]
  7. PRILOSEC [Concomitant]
     Route: 048
  8. COQ10 [Concomitant]
  9. OMEGA 3 [Concomitant]

REACTIONS (2)
  - VEIN DISCOLOURATION [None]
  - VEIN DISORDER [None]
